FAERS Safety Report 5417299-5 (Version None)
Quarter: 2007Q3

REPORT INFORMATION
  Report Type: 
  Country: None (occurrence: None)
  Receive Date: 20070718
  Receipt Date: 20070221
  Transmission Date: 20080115
  Serious: Yes (Hospitalization, Other)
  Sender: FDA-Public Use
  Company Number: 2005138645

PATIENT
  Age: 54 Year
  Sex: Female

DRUGS (33)
  1. CELEBREX [Suspect]
     Indication: ROTATOR CUFF SYNDROME
     Dosage: 200 MG (100 MG, 2 IN 1 D)
     Dates: start: 19990205
  2. VIOXX [Suspect]
     Dosage: 25 MG (25 MG, 1 IN 1 D), ORAL
     Route: 048
     Dates: start: 20000109, end: 20040801
  3. FLONASE [Concomitant]
  4. LEVBID [Concomitant]
  5. DARVOCET [Concomitant]
  6. PRAVACHOL [Concomitant]
  7. ULTRAM [Concomitant]
  8. CLIMARA [Concomitant]
  9. HUMULIN 70/30 [Concomitant]
  10. SYNTHROID [Concomitant]
  11. VASOTEC [Concomitant]
  12. ALLEGRA [Concomitant]
  13. ORLISTAT [Concomitant]
  14. AVANDIA [Concomitant]
  15. ACIPHEX [Concomitant]
  16. ZOCOR [Concomitant]
  17. BETAMETHASONE DIPROPIONATE [Concomitant]
  18. ATARAX [Concomitant]
  19. PROZAC [Concomitant]
  20. LORTAB [Concomitant]
  21. MOTRIN [Concomitant]
  22. LEVAQUIN [Concomitant]
  23. SKELAXIN [Concomitant]
  24. PLAVIX [Concomitant]
  25. LOPRESSOR [Concomitant]
  26. NEXIUM [Concomitant]
  27. ALL OTHER THERAPEUTIC PRODUCTS [Concomitant]
  28. TRICOR [Concomitant]
  29. ZANAFLEX [Concomitant]
  30. TOPROL-XL [Concomitant]
  31. NITROLINGUAL [Concomitant]
  32. MERIDIA [Concomitant]
  33. ASPIRIN [Concomitant]

REACTIONS (20)
  - ACUTE SINUSITIS [None]
  - ARTHROPOD STING [None]
  - BACK PAIN [None]
  - BLOOD GLUCOSE DECREASED [None]
  - CHEST PAIN [None]
  - CORONARY ARTERY DISEASE [None]
  - DYSPNOEA [None]
  - GASTROOESOPHAGEAL REFLUX DISEASE [None]
  - HYPERHIDROSIS [None]
  - LUMBAR RADICULOPATHY [None]
  - MUSCLE STRAIN [None]
  - MYOCARDIAL INFARCTION [None]
  - NAUSEA [None]
  - NECK PAIN [None]
  - OBESITY [None]
  - OEDEMA PERIPHERAL [None]
  - PAIN IN EXTREMITY [None]
  - RHINITIS ALLERGIC [None]
  - ROAD TRAFFIC ACCIDENT [None]
  - URINARY TRACT INFECTION [None]
